FAERS Safety Report 4818664-7 (Version None)
Quarter: 2005Q4

REPORT INFORMATION
  Report Type: 
  Country: None (occurrence: None)
  Receive Date: 20051102
  Receipt Date: 20051027
  Transmission Date: 20060501
  Serious: Yes (Other)
  Sender: FDA-Public Use
  Company Number: AU-MERCK-0510AUS00146

PATIENT
  Age: 72 Year
  Sex: Female

DRUGS (3)
  1. ZETIA [Suspect]
     Route: 048
     Dates: start: 20050601
  2. ZETIA [Suspect]
     Route: 048
     Dates: start: 20050101, end: 20050901
  3. ZETIA [Suspect]
     Route: 048
     Dates: start: 20050101, end: 20050101

REACTIONS (3)
  - DEPRESSION [None]
  - HEADACHE [None]
  - SUICIDAL IDEATION [None]
